FAERS Safety Report 4495333-7 (Version None)
Quarter: 2004Q4

REPORT INFORMATION
  Report Type: 
  Country: None (occurrence: None)
  Receive Date: 20041108
  Receipt Date: 20021024
  Transmission Date: 20050328
  Serious: Yes (Hospitalization, Other)
  Sender: FDA-Public Use
  Company Number: TH-NOVOPROD-221287

PATIENT
  Age: 56 Year
  Sex: Male
  Weight: 56 kg

DRUGS (3)
  1. NOVOSEVEN [Suspect]
     Indication: LIVER DISORDER
     Dosage: 100 UG/KG, UNK
     Route: 042
     Dates: start: 20021022, end: 20021022
  2. ATENOLOL [Concomitant]
  3. GLIPIZIDE [Concomitant]

REACTIONS (3)
  - BLOOD PRESSURE DECREASED [None]
  - MYOCARDIAL INFARCTION [None]
  - POST PROCEDURAL COMPLICATION [None]
